FAERS Safety Report 17549706 (Version 1)
Quarter: 2020Q1

REPORT INFORMATION
  Report Type: Spontaneous
  Country: US (occurrence: US)
  Receive Date: 20200309
  Receipt Date: 20200309
  Transmission Date: 20200409
  Serious: Yes (Hospitalization, Disabling)
  Sender: FDA-Public Use
  Company Number: None

PATIENT
  Age: 86 Year
  Sex: Male
  Weight: 63.5 kg

DRUGS (1)
  1. CEFUROXIME. [Suspect]
     Active Substance: CEFUROXIME
     Indication: URINARY TRACT INFECTION
     Route: 048
     Dates: start: 20190807, end: 20190816

REACTIONS (8)
  - Aphasia [None]
  - Asthenia [None]
  - Confusional state [None]
  - Tremor [None]
  - Myoclonus [None]
  - Fatigue [None]
  - Gait disturbance [None]
  - Metabolic encephalopathy [None]

NARRATIVE: CASE EVENT DATE: 20190817
